FAERS Safety Report 5463414-7 (Version None)
Quarter: 2007Q3

REPORT INFORMATION
  Report Type: 
  Country: None (occurrence: None)
  Receive Date: 20070920
  Receipt Date: 20070910
  Transmission Date: 20080115
  Serious: No
  Sender: FDA-Public Use
  Company Number: US-BAXTER-2007BH007631

PATIENT
  Age: 64 Year
  Sex: Female

DRUGS (3)
  1. NAFCILLIN SODIUM [Suspect]
     Indication: STAPHYLOCOCCAL SEPSIS
     Dosage: DOSE UNIT:UNKNOWN
     Route: 065
  2. CEFTRIAXONE [Concomitant]
     Indication: STAPHYLOCOCCAL SEPSIS
     Dosage: DOSE UNIT:UNKNOWN
     Route: 065
  3. VANCOMYCIN [Concomitant]
     Indication: STAPHYLOCOCCAL SEPSIS
     Dosage: DOSE UNIT:UNKNOWN
     Route: 065

REACTIONS (2)
  - EOSINOPHILIA [None]
  - NEPHRITIS INTERSTITIAL [None]
